FAERS Safety Report 4502697-4 (Version None)
Quarter: 2004Q4

REPORT INFORMATION
  Report Type: 
  Country: None (occurrence: None)
  Receive Date: 20041109
  Receipt Date: 20041022
  Transmission Date: 20050328
  Serious: Yes (Disabling)
  Sender: FDA-Public Use
  Company Number: 9166

PATIENT
  Age: 76 Year
  Sex: Female

DRUGS (7)
  1. METHOTREXATE [Suspect]
     Indication: RHEUMATOID ARTHRITIS
     Dosage: 5 G WEEKLY PO
     Route: 048
     Dates: start: 20000203, end: 20040917
  2. ALENDRONATE SODIUM [Suspect]
     Indication: OSTEOPOROSIS
     Dosage: 70 MG WEEKLY PO
     Route: 048
     Dates: start: 20031209, end: 20040917
  3. BENDROFLUAZIDE [Concomitant]
  4. NABUMETONE [Concomitant]
  5. AMLODIPINE [Concomitant]
  6. DIHYDROCODEINE/PARACETAMOL [Concomitant]
  7. LANSOPRAZOLE [Concomitant]

REACTIONS (2)
  - ABDOMINAL PAIN [None]
  - LIVER FUNCTION TEST ABNORMAL [None]
